FAERS Safety Report 16933707 (Version 5)
Quarter: 2020Q3

REPORT INFORMATION
  Report Type: Report from Study
  Country: AT (occurrence: AT)
  Receive Date: 20191018
  Receipt Date: 20200804
  Transmission Date: 20201102
  Serious: Yes (Other)
  Sender: FDA-Public Use
  Company Number: AT-IBIGEN-2019.07295

PATIENT
  Age: 48 Year
  Sex: Female
  Weight: 55 kg

DRUGS (7)
  1. CRESEMBA [Suspect]
     Active Substance: ISAVUCONAZONIUM SULFATE
     Indication: ASPERGILLUS INFECTION
     Dosage: 2DF, 1X/DAY
     Route: 048
     Dates: start: 20180417
  2. CRESEMBA [Suspect]
     Active Substance: ISAVUCONAZONIUM SULFATE
     Indication: ASPERGILLUS INFECTION
     Dosage: 200MG 3X/DAY (LOADING DOSE OF 200MG, THREE TIMES DAILY (600MG))
     Route: 042
     Dates: start: 20180329, end: 20180330
  3. CRESEMBA [Suspect]
     Active Substance: ISAVUCONAZONIUM SULFATE
     Indication: FUNGAL INFECTION
     Dosage: 2DF, 1X /DAY
     Route: 048
     Dates: start: 20180417
  4. OSELTAMIVIR [Suspect]
     Active Substance: OSELTAMIVIR
     Indication: INFLUENZA
     Dosage: UNK
     Route: 048
     Dates: start: 20180328, end: 20180417
  5. CRESEMBA [Suspect]
     Active Substance: ISAVUCONAZONIUM SULFATE
     Indication: ASPERGILLUS INFECTION
     Dosage: 200 MG, 1X/DAY (LOADING DOSE AND MAINTENANCE DOSE)
     Route: 042
     Dates: start: 20180331, end: 20180417
  6. CRESEMBA [Suspect]
     Active Substance: ISAVUCONAZONIUM SULFATE
     Indication: FUNGAL INFECTION
     Dosage: 200MG 3X/DAY (LOADING DOSE OF 200MG, THREE TIMES DAILY (600MG)
     Route: 042
     Dates: start: 20180329, end: 20180330
  7. PIPERACILLIN AND TAZOBACTAM [Suspect]
     Active Substance: PIPERACILLIN SODIUM\TAZOBACTAM SODIUM
     Indication: PNEUMONIA
     Dosage: UNK
     Route: 042
     Dates: start: 20180326, end: 20180403

REACTIONS (4)
  - Underdose [Unknown]
  - Off label use [Unknown]
  - Leukopenia [Recovered/Resolved]
  - Inappropriate schedule of product administration [Unknown]

NARRATIVE: CASE EVENT DATE: 20180329
